FAERS Safety Report 8798272 (Version 2)
Quarter: 2012Q4

REPORT INFORMATION
  Report Type: 
  Country: ES (occurrence: ES)
  Receive Date: 20120920
  Receipt Date: 20120925
  Transmission Date: 20130627
  Serious: Yes (Hospitalization)
  Sender: FDA-Public Use
  Company Number: ES-TEVA-358345ISR

PATIENT
  Age: 65 Year
  Sex: Male

DRUGS (2)
  1. TAMSULOSIN [Suspect]
     Dosage: .4 Milligram Daily;
     Route: 048
     Dates: start: 20120702, end: 20120706
  2. TORASEMIDE [Concomitant]
     Dosage: 2.5 Milligram Daily;
     Route: 048
     Dates: start: 20040101

REACTIONS (5)
  - Blood pressure increased [Recovered/Resolved]
  - Diarrhoea [Recovered/Resolved]
  - Dry mouth [Recovered/Resolved]
  - Tachycardia [Recovered/Resolved]
  - Product substitution issue [Recovered/Resolved]
